FAERS Safety Report 4843600-7 (Version None)
Quarter: 2005Q4

REPORT INFORMATION
  Report Type: 
  Country: None (occurrence: None)
  Receive Date: 20051125
  Receipt Date: 20051109
  Transmission Date: 20060501
  Serious: Yes (Hospitalization, Other)
  Sender: FDA-Public Use
  Company Number: US200511000087

PATIENT
  Age: 9 Year
  Sex: Female

DRUGS (3)
  1. STRATTERA [Suspect]
     Indication: ATTENTION DEFICIT/HYPERACTIVITY DISORDER
     Dosage: 50 D/F, DAILY (1/D)
     Dates: start: 20040101, end: 20050101
  2. STRATTERA [Suspect]
     Dosage: 50 MG, DAILY (1/D)
     Dates: end: 20050101
  3. TOPAMAX [Concomitant]

REACTIONS (2)
  - CONVULSION [None]
  - HALLUCINATION, AUDITORY [None]
